FAERS Safety Report 25919855 (Version 1)
Quarter: 2025Q4

REPORT INFORMATION
  Report Type: Spontaneous
  Country: US (occurrence: None)
  Receive Date: 20251013
  Receipt Date: 20251013
  Transmission Date: 20260117
  Serious: Yes (Life-Threatening, Disabling)
  Sender: FDA-CTU
  Company Number: None

PATIENT
  Age: 22 Year
  Sex: Female
  Weight: 58.5 kg

DRUGS (1)
  1. ZOLOFT [Suspect]
     Active Substance: SERTRALINE HYDROCHLORIDE
     Indication: Social anxiety disorder

REACTIONS (13)
  - Nervous system disorder [None]
  - Visual impairment [None]
  - Auditory disorder [None]
  - Hypoaesthesia [None]
  - Genital hypoaesthesia [None]
  - Electric shock sensation [None]
  - Muscle atrophy [None]
  - Sexual dysfunction [None]
  - Amnesia [None]
  - Educational problem [None]
  - Impaired quality of life [None]
  - Suicide attempt [None]
  - Depression [None]

NARRATIVE: CASE EVENT DATE: 20250115
